FAERS Safety Report 5721204-1 (Version None)
Quarter: 2008Q2

REPORT INFORMATION
  Report Type: 
  Country: None (occurrence: None)
  Receive Date: 20080429
  Receipt Date: 20080401
  Transmission Date: 20081010
  Serious: No
  Sender: FDA-Public Use
  Company Number: US-AVENTIS-200810953US

PATIENT
  Sex: Female
  Weight: 83.91 kg

DRUGS (7)
  1. TAXOTERE [Suspect]
     Indication: BREAST CANCER
     Route: 042
     Dates: start: 20071206, end: 20071206
  2. CARBOPLATIN [Concomitant]
     Indication: BREAST CANCER
     Route: 042
     Dates: start: 20071129
  3. :AVASTIN^ NOS [Concomitant]
     Dosage: DOSE: UNK
  4. BENADRYL [Concomitant]
     Route: 042
     Dates: start: 20071129
  5. ALOXI [Concomitant]
     Route: 042
     Dates: start: 20071129
  6. DECADRON [Concomitant]
     Route: 042
     Dates: start: 20071129
  7. ZANTAC [Concomitant]
     Route: 042
     Dates: start: 20071129

REACTIONS (3)
  - CHEST DISCOMFORT [None]
  - FEELING ABNORMAL [None]
  - PALPITATIONS [None]
